FAERS Safety Report 5361598-2 (Version None)
Quarter: 2007Q2

REPORT INFORMATION
  Report Type: 
  Country: None (occurrence: None)
  Receive Date: 20070619
  Receipt Date: 20070612
  Transmission Date: 20071010
  Serious: Yes (Death, Other)
  Sender: FDA-Public Use
  Company Number: PHEH2007US02302

PATIENT
  Age: 61 Year
  Sex: Male
  Weight: 109.48 kg

DRUGS (3)
  1. PROLEUKIN [Suspect]
     Indication: METASTATIC RENAL CELL CARCINOMA
     Dosage: 600,000 IU/KG
     Dates: start: 20070205, end: 20070210
  2. SUTENT [Suspect]
     Indication: METASTATIC RENAL CELL CARCINOMA
     Dosage: THREE CYCLES
     Dates: start: 20060711, end: 20061108
  3. SUTENT [Suspect]
     Dosage: CONTINOUS TREATMENT
     Dates: start: 20061127

REACTIONS (23)
  - APNOEA [None]
  - ARRHYTHMIA [None]
  - ASPARTATE AMINOTRANSFERASE INCREASED [None]
  - BLOOD ALKALINE PHOSPHATASE INCREASED [None]
  - BLOOD BILIRUBIN INCREASED [None]
  - BLOOD CREATININE INCREASED [None]
  - BLOOD GLUCOSE INCREASED [None]
  - BLOOD POTASSIUM DECREASED [None]
  - BLOOD UREA INCREASED [None]
  - CARDIAC ARREST [None]
  - CARDIOMEGALY [None]
  - ERYTHEMA [None]
  - HYPERPLASTIC CHOLECYSTOPATHY [None]
  - MYOCARDITIS [None]
  - NEPHRITIS INTERSTITIAL [None]
  - PLATELET COUNT DECREASED [None]
  - PORTAL TRIADITIS [None]
  - RESPIRATORY ARREST [None]
  - SUDDEN DEATH [None]
  - TRACHEOSTOMY [None]
  - UNRESPONSIVE TO STIMULI [None]
  - VENTRICULAR HYPERTROPHY [None]
  - WHITE BLOOD CELL COUNT DECREASED [None]
